FAERS Safety Report 16572391 (Version 1)
Quarter: 2019Q3

REPORT INFORMATION
  Report Type: Spontaneous
  Country: BE (occurrence: BE)
  Receive Date: 20190715
  Receipt Date: 20190715
  Transmission Date: 20191004
  Serious: Yes (Other)
  Sender: FDA-Public Use
  Company Number: BE-ARBOR PHARMACEUTICALS, LLC-BE-2019ARB001075

PATIENT
  Age: 50 Year
  Sex: Female

DRUGS (1)
  1. AMPHETAMINE SULFATE. [Suspect]
     Active Substance: AMPHETAMINE SULFATE
     Indication: PRODUCT USED FOR UNKNOWN INDICATION
     Dosage: UNK

REACTIONS (3)
  - Aortic dissection [Unknown]
  - Aortic dilatation [Unknown]
  - Drug abuse [Unknown]
